FAERS Safety Report 22334249 (Version 1)
Quarter: 2023Q2

REPORT INFORMATION
  Report Type: Spontaneous
  Country: US (occurrence: US)
  Receive Date: 20230517
  Receipt Date: 20230517
  Transmission Date: 20230722
  Serious: Yes (Other)
  Sender: FDA-Public Use
  Company Number: US-INCYTE CORPORATION-2023IN004973

PATIENT

DRUGS (1)
  1. JAKAFI [Suspect]
     Active Substance: RUXOLITINIB
     Indication: Myelofibrosis
     Dosage: 2 5MG TABLETS IN THE MORNING, AND 1 5MG TABLET IN THE EVENING
     Route: 048
     Dates: start: 202201

REACTIONS (1)
  - Crohn^s disease [Unknown]
